FAERS Safety Report 7075048-1 (Version None)
Quarter: 2010Q4

REPORT INFORMATION
  Report Type: 
  Country: None (occurrence: None)
  Receive Date: 20101029
  Receipt Date: 20100203
  Transmission Date: 20110411
  Serious: No
  Sender: FDA-Public Use
  Company Number: US-WYE-H13421710

PATIENT
  Age: 85 Year
  Sex: Female
  Weight: 81.72 kg

DRUGS (4)
  1. ADVIL PM [Suspect]
     Indication: INSOMNIA
     Dosage: 1 CAPLET TWICE
     Route: 048
     Dates: start: 20100201
  2. SYNTHROID [Concomitant]
  3. DIOVAN [Concomitant]
  4. ACTOS [Concomitant]

REACTIONS (1)
  - MOUTH HAEMORRHAGE [None]
